FAERS Safety Report 9588799 (Version 1)
Quarter: 2013Q4

REPORT INFORMATION
  Report Type: Spontaneous
  Country: US (occurrence: US)
  Receive Date: 20131003
  Receipt Date: 20131003
  Transmission Date: 20140711
  Serious: No
  Sender: FDA-Public Use
  Company Number: US-AMGEN-USASP2012066648

PATIENT
  Age: 54 Year
  Sex: Female
  Weight: 88.44 kg

DRUGS (5)
  1. ENBREL [Suspect]
     Indication: PSORIATIC ARTHROPATHY
     Dosage: 50 MG, QWK
     Route: 058
  2. VAGIFEN [Concomitant]
     Dosage: 10 MUG, UNK
  3. IRON [Concomitant]
     Dosage: 325 MG, UNK
  4. MULTIVITAMIN                       /00097801/ [Concomitant]
     Dosage: UNK
  5. GLUCOSAMINE CHONDROITIN            /01430901/ [Concomitant]
     Dosage: UNK

REACTIONS (1)
  - Injection site bruising [Recovered/Resolved]
